FAERS Safety Report 8581575-8 (Version None)
Quarter: 2012Q3

REPORT INFORMATION
  Report Type: 
  Country: None (occurrence: None)
  Receive Date: 20120809
  Receipt Date: 20120730
  Transmission Date: 20120928
  Serious: Yes (Hospitalization)
  Sender: FDA-Public Use
  Company Number: FR-BAYER-2012-029071

PATIENT
  Age: 33 Year
  Sex: Female
  Weight: 60 kg

DRUGS (3)
  1. ASPEGIC 1000 [Concomitant]
  2. ESTRADIOL VALERATE/DIENOGEST [Suspect]
     Indication: CONTRACEPTION
     Dosage: UNK
     Dates: start: 20120306, end: 20120401
  3. NOCERTONE [Concomitant]

REACTIONS (3)
  - SUDDEN VISUAL LOSS [None]
  - RETINAL MIGRAINE [None]
  - HEADACHE [None]
